FAERS Safety Report 12616982 (Version 2)
Quarter: 2016Q4

REPORT INFORMATION
  Report Type: Spontaneous
  Country: JP (occurrence: JP)
  Receive Date: 20160803
  Receipt Date: 20161124
  Transmission Date: 20170207
  Serious: Yes (Disabling)
  Sender: FDA-Public Use
  Company Number: JP-ROCHE-1807005

PATIENT
  Age: 45 Year
  Sex: Male

DRUGS (6)
  1. EVEROLIMUS [Suspect]
     Active Substance: EVEROLIMUS
     Indication: PROPHYLAXIS AGAINST TRANSPLANT REJECTION
     Dosage: FRACTIONATION DOSE UNCERTAIN FREQUENCY, AND DOSE INTERVAL UNCERTAINTY
     Route: 065
     Dates: start: 201302
  2. METHYLPREDNISOLONE. [Suspect]
     Active Substance: METHYLPREDNISOLONE
     Indication: PROPHYLAXIS AGAINST TRANSPLANT REJECTION
     Route: 065
     Dates: start: 20091215
  3. CELLCEPT [Suspect]
     Active Substance: MYCOPHENOLATE MOFETIL\MYCOPHENOLATE MOFETIL HYDROCHLORIDE
     Indication: PROPHYLAXIS AGAINST TRANSPLANT REJECTION
     Dosage: 1250-1500MG/DAY, FRACTIONATION DOSE UNCERTAIN FREQUENCY, AND DOSE INTERVAL UNCERTAINTY
     Route: 048
     Dates: start: 20091215, end: 201401
  4. TACROLIMUS HYDRATE [Suspect]
     Active Substance: TACROLIMUS
     Indication: PROPHYLAXIS AGAINST TRANSPLANT REJECTION
     Dosage: FRACTIONATION DOSE UNCERTAIN FREQUENCY, AND DOSE INTERVAL UNCERTAINTY
     Route: 065
     Dates: start: 20091215
  5. TACROLIMUS HYDRATE [Suspect]
     Active Substance: TACROLIMUS
     Route: 065
  6. CELLCEPT [Suspect]
     Active Substance: MYCOPHENOLATE MOFETIL\MYCOPHENOLATE MOFETIL HYDROCHLORIDE
     Dosage: FRACTIONATION DOSE UNCERTAIN FREQUENCY, AND DOSE INTERVAL UNCERTAINTY
     Route: 048
     Dates: start: 201406

REACTIONS (2)
  - Post transplant lymphoproliferative disorder [Recovered/Resolved]
  - Glomerulonephritis [Recovering/Resolving]

NARRATIVE: CASE EVENT DATE: 201401
